FAERS Safety Report 10442203 (Version 1)
Quarter: 2014Q2

REPORT INFORMATION
  Report Type: Spontaneous
  Country: US (occurrence: None)
  Receive Date: 20140604
  Receipt Date: 20140604
  Transmission Date: 20141212
  Serious: Yes (Hospitalization)
  Sender: FDA-Public Use
  Company Number: 20120314CINRY2739

PATIENT
  Age: 23 Year
  Sex: Male

DRUGS (2)
  1. CINRYZE [Suspect]
     Indication: HEREDITARY ANGIOEDEMA
     Route: 042
  2. CINRYZE [Suspect]
     Indication: PROPHYLAXIS
     Route: 042

REACTIONS (3)
  - Keloid scar [None]
  - Vein disorder [None]
  - Poor venous access [None]
